FAERS Safety Report 8152034-1 (Version None)
Quarter: 2012Q1

REPORT INFORMATION
  Report Type: 
  Country: None (occurrence: None)
  Receive Date: 20120214
  Receipt Date: 20120130
  Transmission Date: 20120608
  Serious: Yes (Other)
  Sender: FDA-Public Use
  Company Number: 2012P1003839

PATIENT
  Age: 53 Year
  Sex: Female

DRUGS (5)
  1. FLUOXETINE [Suspect]
     Indication: DEPRESSION
  2. HYDROCORTISONE [Concomitant]
  3. CANNABIS (NO PREF. NAME) [Suspect]
  4. BEVACIZUMAB (NO PREF. NAME) [Suspect]
     Indication: BREAST CANCER
  5. CARBOPLATIN [Concomitant]

REACTIONS (5)
  - HEADACHE [None]
  - CEREBRAL VASOCONSTRICTION [None]
  - PHOTOPHOBIA [None]
  - VOMITING [None]
  - NAUSEA [None]
